FAERS Safety Report 10026172 (Version 2)
Quarter: 2014Q1

REPORT INFORMATION
  Report Type: Spontaneous
  Country: US (occurrence: US)
  Receive Date: 20140320
  Receipt Date: 20140320
  Transmission Date: 20141002
  Serious: No
  Sender: FDA-Public Use
  Company Number: US-ALLERGAN-1401098US

PATIENT
  Age: 85 Year
  Sex: Female

DRUGS (11)
  1. LUMIGAN 0.01% [Suspect]
     Indication: GLAUCOMA
     Dosage: 2 GTT, QHS
     Route: 047
  2. COSOPT [Concomitant]
     Indication: GLAUCOMA
     Dosage: 2 GTT, BID
     Route: 047
  3. RYTHMOL                            /00546301/ [Concomitant]
     Indication: ATRIAL FIBRILLATION
     Dosage: 250 MG, BID
     Route: 048
  4. LISINOPRIL [Concomitant]
     Indication: HYPERTENSION
     Dosage: 40 MG, UNK
     Route: 048
  5. WARFARIN [Concomitant]
     Indication: ATRIAL FIBRILLATION
     Dosage: 10MG 4X/WEEK AND 5MG 3X WEEK
     Route: 048
  6. PRIMIDONE [Concomitant]
     Indication: PARKINSON^S DISEASE
     Dosage: 100 MG, QHS
     Route: 048
  7. FOSAMAX [Concomitant]
     Indication: BONE DISORDER
     Dosage: UNK
  8. SERTALINE [Concomitant]
     Indication: AFFECTIVE DISORDER
     Dosage: 50 MG, QD
     Route: 048
  9. SIMVASTATIN [Concomitant]
     Indication: BLOOD CHOLESTEROL INCREASED
     Dosage: 20 MG, QHS
     Route: 048
  10. OMEPRAZOLE [Concomitant]
     Indication: GASTROOESOPHAGEAL REFLUX DISEASE
     Dosage: 20 MG, BID
     Route: 048
  11. CLEAR EYES                         /00419602/ [Concomitant]
     Indication: DRY EYE
     Dosage: UNK
     Route: 047

REACTIONS (3)
  - Visual acuity reduced [Not Recovered/Not Resolved]
  - Visual impairment [Not Recovered/Not Resolved]
  - Intraocular pressure increased [Recovered/Resolved]
